FAERS Safety Report 20143455 (Version 2)
Quarter: 2022Q1

REPORT INFORMATION
  Report Type: Spontaneous
  Country: US (occurrence: US)
  Receive Date: 20211203
  Receipt Date: 20220131
  Transmission Date: 20220424
  Serious: Yes (Other)
  Sender: FDA-Public Use
  Company Number: US-ABBVIE-21K-163-4182469-00

PATIENT
  Age: 85 Year
  Sex: Male
  Weight: 77.180 kg

DRUGS (20)
  1. DUOPA [Suspect]
     Active Substance: CARBIDOPA\LEVODOPA
     Indication: Parkinson^s disease
     Route: 050
     Dates: start: 20210325
  2. DUOPA [Suspect]
     Active Substance: CARBIDOPA\LEVODOPA
     Route: 050
  3. LUTEIN [Concomitant]
     Active Substance: LUTEIN
     Indication: Eye disorder prophylaxis
  4. VITAMIN C [Concomitant]
     Active Substance: ASCORBIC ACID
     Indication: Supplementation therapy
  5. VITAMIN D [Concomitant]
     Active Substance: VITAMIN D NOS
     Indication: Supplementation therapy
  6. NIACIN [Concomitant]
     Active Substance: NIACIN
     Indication: Supplementation therapy
  7. TRIAMCINOLONE [Concomitant]
     Active Substance: TRIAMCINOLONE
     Indication: Skin disorder prophylaxis
  8. FINASTERIDE [Concomitant]
     Active Substance: FINASTERIDE
     Indication: Urine flow decreased
  9. OMEPRAZOLE [Concomitant]
     Active Substance: OMEPRAZOLE
     Indication: Gastrooesophageal reflux disease
  10. CELECOXIB [Concomitant]
     Active Substance: CELECOXIB
     Indication: Arthralgia
  11. TOPIRAMATE [Concomitant]
     Active Substance: TOPIRAMATE
     Indication: Blindness unilateral
  12. AMLODIPINE [Concomitant]
     Active Substance: AMLODIPINE BESYLATE
     Indication: Hypertension
  13. PRAVASTATIN [Concomitant]
     Active Substance: PRAVASTATIN
     Indication: Blood cholesterol increased
  14. AMANTADINE [Concomitant]
     Active Substance: AMANTADINE
     Indication: Dyskinesia
  15. CARBIDOPA\LEVODOPA [Concomitant]
     Active Substance: CARBIDOPA\LEVODOPA
     Indication: Parkinson^s disease
  16. RYTARY [Concomitant]
     Active Substance: CARBIDOPA\LEVODOPA
     Indication: Parkinson^s disease
  17. WARFARIN [Concomitant]
     Active Substance: WARFARIN
     Indication: Prophylaxis
  18. MODERNA COVID-19 VACCINE [Concomitant]
     Active Substance: ELASOMERAN
     Indication: COVID-19 immunisation
     Route: 030
     Dates: start: 20210202, end: 20210202
  19. MODERNA COVID-19 VACCINE [Concomitant]
     Active Substance: ELASOMERAN
     Dosage: 2ND DOSE
     Route: 030
     Dates: start: 20210312, end: 20210312
  20. MODERNA COVID-19 VACCINE [Concomitant]
     Active Substance: ELASOMERAN
     Dosage: BOOSTER
     Route: 030
     Dates: start: 20211111, end: 20211111

REACTIONS (9)
  - Cataract [Not Recovered/Not Resolved]
  - Glaucoma [Recovering/Resolving]
  - Visual impairment [Unknown]
  - Dysstasia [Unknown]
  - Dizziness [Unknown]
  - Device issue [Unknown]
  - Visual impairment [Recovering/Resolving]
  - Intraocular pressure increased [Recovered/Resolved]
  - Spinal stenosis [Unknown]

NARRATIVE: CASE EVENT DATE: 20211001
